FAERS Safety Report 6367451-X (Version None)
Quarter: 2009Q3

REPORT INFORMATION
  Report Type: 
  Country: None (occurrence: None)
  Receive Date: 20090921
  Receipt Date: 20090908
  Transmission Date: 20100115
  Serious: Yes (Hospitalization)
  Sender: FDA-Public Use
  Company Number: B0592173A

PATIENT
  Sex: Male

DRUGS (6)
  1. ARIXTRA [Suspect]
     Indication: DEEP VEIN THROMBOSIS
     Route: 058
     Dates: start: 20090706, end: 20090707
  2. BRISTOPEN [Suspect]
     Indication: ERYSIPELAS
     Dosage: 2G PER DAY
     Route: 048
     Dates: start: 20090706, end: 20090710
  3. BETADINE [Suspect]
     Indication: SKIN LESION
     Route: 061
     Dates: start: 20090706, end: 20090712
  4. CLARITIN [Suspect]
     Indication: PRURITUS
     Dosage: 1UNIT PER DAY
     Route: 048
     Dates: start: 20090630, end: 20090712
  5. LOCERYL [Suspect]
     Indication: SKIN LESION
     Route: 061
     Dates: start: 20090630, end: 20090712
  6. FUCIDINE CAP [Suspect]
     Indication: SKIN LESION
     Route: 061
     Dates: start: 20090630, end: 20090703

REACTIONS (15)
  - CHILLS [None]
  - CHOLESTASIS [None]
  - DERMATITIS BULLOUS [None]
  - DERMATITIS EXFOLIATIVE [None]
  - DRUG ERUPTION [None]
  - EOSINOPHILIA [None]
  - FACE OEDEMA [None]
  - HYPOCAPNIA [None]
  - HYPOXIA [None]
  - INFLAMMATION [None]
  - LEUKOCYTOSIS [None]
  - LYMPHOPENIA [None]
  - NEUTROPHIL COUNT INCREASED [None]
  - RASH SCARLATINIFORM [None]
  - RENAL FAILURE [None]
